FAERS Safety Report 22192659 (Version 1)
Quarter: 2023Q2

REPORT INFORMATION
  Report Type: Spontaneous
  Country: MX (occurrence: MX)
  Receive Date: 20230410
  Receipt Date: 20230410
  Transmission Date: 20230722
  Serious: Yes (Other)
  Sender: FDA-Public Use
  Company Number: MX-BAYER-2023A046474

PATIENT
  Age: 29 Year
  Sex: Female
  Weight: 61 kg

DRUGS (1)
  1. ULTRAVIST [Suspect]
     Active Substance: IOPROMIDE
     Indication: Computerised tomogram abdomen
     Dosage: 80 ML, ONCE
     Route: 042

REACTIONS (5)
  - Dyspnoea [None]
  - Throat irritation [None]
  - Pharyngeal disorder [None]
  - Nasal congestion [None]
  - Stridor [None]

NARRATIVE: CASE EVENT DATE: 20230331
